FAERS Safety Report 4364730-2 (Version None)
Quarter: 2004Q2

REPORT INFORMATION
  Report Type: 
  Country: None (occurrence: None)
  Receive Date: 20040521
  Receipt Date: 20040503
  Transmission Date: 20050107
  Serious: Yes (Hospitalization, Other)
  Sender: FDA-Public Use
  Company Number: US_0405102850

PATIENT
  Age: 61 Year
  Sex: Female
  Weight: 52 kg

DRUGS (4)
  1. GEMCITABINE HYDROCHLORIDE-IV (GEMCITABINE) [Suspect]
     Dosage: 1600 MG OTHER
     Route: 050
     Dates: start: 20000809
  2. CARBOPLATIN [Suspect]
     Dosage: 685 MG OTHER
     Route: 050
     Dates: start: 20000809
  3. HYDROCHLOROTHIAZIDE [Concomitant]
  4. PREVACID [Concomitant]

REACTIONS (15)
  - CYANOSIS [None]
  - FAT EMBOLISM [None]
  - FATIGUE [None]
  - FINGER AMPUTATION [None]
  - HYPERCOAGULATION [None]
  - HYPOKALAEMIA [None]
  - HYPOMAGNESAEMIA [None]
  - HYPONATRAEMIA [None]
  - MUSCULAR WEAKNESS [None]
  - PAIN IN EXTREMITY [None]
  - PERICARDIAL EFFUSION [None]
  - PERIPHERAL EMBOLISM [None]
  - PERIPHERAL ISCHAEMIA [None]
  - PERIPHERAL VASCULAR DISORDER [None]
  - THROMBOCYTOPENIA [None]
